FAERS Safety Report 4960218-6 (Version None)
Quarter: 2006Q1

REPORT INFORMATION
  Report Type: 
  Country: None (occurrence: None)
  Receive Date: 20060328
  Receipt Date: 20051018
  Transmission Date: 20060701
  Serious: Yes (Hospitalization, Other)
  Sender: FDA-Public Use
  Company Number: 2005130166

PATIENT
  Age: 54 Year
  Sex: Male

DRUGS (16)
  1. BEXTRA [Suspect]
     Indication: ARTHRALGIA
     Dosage: 40 MG (20 MG, 2 IN 1 D), ORAL
     Route: 048
     Dates: start: 20020521, end: 20020101
  2. BEXTRA [Suspect]
     Indication: OSTEOARTHRITIS
     Dosage: 40 MG (20 MG, 2 IN 1 D), ORAL
     Route: 048
     Dates: start: 20020521, end: 20020101
  3. TRILEPTAL [Concomitant]
  4. GLUCOPHAGE [Concomitant]
  5. TOPROL-XL [Concomitant]
  6. AMBIEN [Concomitant]
  7. NEURONTIN [Concomitant]
  8. OXYCONTIN [Concomitant]
  9. DICLOFENAC SODIUM [Concomitant]
  10. GLYBURIDE [Concomitant]
  11. PLAVIX [Concomitant]
  12. ASPIRIN [Concomitant]
  13. ACTOS [Concomitant]
  14. WELLBUTRIN XR (BUPROPION HYDROCHLORIDE) [Concomitant]
  15. PREVACID [Concomitant]
  16. THIAMINE [Concomitant]

REACTIONS (3)
  - DEHYDRATION [None]
  - RECTAL HAEMORRHAGE [None]
  - STEVENS-JOHNSON SYNDROME [None]
